FAERS Safety Report 17275953 (Version 1)
Quarter: 2020Q1

REPORT INFORMATION
  Report Type: Spontaneous
  Country: FR (occurrence: FR)
  Receive Date: 20200116
  Receipt Date: 20200116
  Transmission Date: 20200409
  Serious: Yes (Hospitalization)
  Sender: FDA-Public Use
  Company Number: FR-ACCORD-169691

PATIENT
  Age: 72 Year
  Sex: Male
  Weight: 87.6 kg

DRUGS (10)
  1. FLUOROURACIL. [Suspect]
     Active Substance: FLUOROURACIL
     Indication: DUCTAL ADENOCARCINOMA OF PANCREAS
     Dosage: FOLFIRINOX PROTOCOL, BOLUS ON DAY 1 400 MG / M2 IN 2 HOURS THEN 1200 MG /M2 / DAY OVER 46 HOURS
     Route: 041
     Dates: start: 20191121, end: 20191122
  2. MOPRAL [Concomitant]
     Active Substance: OMEPRAZOLE
     Route: 048
  3. ACTRAPID [Concomitant]
     Active Substance: INSULIN HUMAN
     Route: 058
  4. OXALIPLATIN. [Suspect]
     Active Substance: OXALIPLATIN
     Indication: DUCTAL ADENOCARCINOMA OF PANCREAS
     Dosage: FOLFIRINOX PROTOCOL 85MG / M2 / D ON DAY 1
     Route: 041
     Dates: start: 20191121, end: 20191121
  5. FOLINIC ACID [Concomitant]
     Active Substance: LEUCOVORIN
     Indication: CHEMOTHERAPY TOXICITY ATTENUATION
     Dosage: FOLFIRINOX PROTOCOL, 400 MG / M2 ON DAY 1
     Route: 041
     Dates: start: 20191121, end: 20191121
  6. LANSOYL [Concomitant]
     Active Substance: MINERAL OIL
     Route: 048
  7. CREON [Concomitant]
     Active Substance: PANCRELIPASE AMYLASE\PANCRELIPASE LIPASE\PANCRELIPASE PROTEASE
     Route: 048
  8. XATRAL LP [Concomitant]
     Active Substance: ALFUZOSIN
     Dosage: STRENGTH-10 MG
     Route: 048
  9. IRINOTECAN [Suspect]
     Active Substance: IRINOTECAN
     Indication: DUCTAL ADENOCARCINOMA OF PANCREAS
     Dosage: FOLFIRINOX PROTOCOL 180 MG / M2 / D ON DAY 1
     Route: 041
     Dates: start: 20191121, end: 20191121
  10. ABASAGLAR [Concomitant]
     Active Substance: INSULIN GLARGINE
     Route: 058

REACTIONS (2)
  - Hypokalaemia [Recovered/Resolved]
  - Diarrhoea [Recovered/Resolved]

NARRATIVE: CASE EVENT DATE: 20191121
